FAERS Safety Report 25380189 (Version 2)
Quarter: 2025Q3

REPORT INFORMATION
  Report Type: Spontaneous
  Country: US (occurrence: US)
  Receive Date: 20250530
  Receipt Date: 20250717
  Transmission Date: 20251020
  Serious: Yes (Other)
  Sender: COOPERSURGICAL
  Company Number: US-COOPERSURGICAL, INC.-2025CPS004228

PATIENT
  Age: 47 Year
  Sex: Female
  Weight: 70.295 kg

DRUGS (4)
  1. PARAGARD T 380A [Suspect]
     Active Substance: COPPER
     Indication: Contraception
     Route: 015
     Dates: start: 20090630
  2. MONTELUKAST [Concomitant]
     Active Substance: MONTELUKAST
     Dates: start: 19990901
  3. SYMBICORT [Concomitant]
     Active Substance: BUDESONIDE\FORMOTEROL FUMARATE DIHYDRATE
     Dates: start: 200001
  4. BUPROPION [Concomitant]
     Active Substance: BUPROPION
     Dates: start: 201001

REACTIONS (8)
  - Reproductive complication associated with device [Not Recovered/Not Resolved]
  - Device breakage [Not Recovered/Not Resolved]
  - Foreign body in reproductive tract [Not Recovered/Not Resolved]
  - Complication of device removal [Not Recovered/Not Resolved]
  - Embedded device [Not Recovered/Not Resolved]
  - Emotional disorder [Unknown]
  - Device use issue [Unknown]
  - Off label use [Unknown]

NARRATIVE: CASE EVENT DATE: 20210503
